FAERS Safety Report 6510343-3 (Version None)
Quarter: 2009Q4

REPORT INFORMATION
  Report Type: 
  Country: None (occurrence: None)
  Receive Date: 20091222
  Receipt Date: 20091102
  Transmission Date: 20100525
  Serious: No
  Sender: FDA-Public Use
  Company Number: US-ASTRAZENECA-2009SE17577

PATIENT
  Age: 30163 Day
  Sex: Female

DRUGS (5)
  1. CRESTOR [Suspect]
     Route: 048
     Dates: start: 20090923, end: 20090925
  2. CRESTOR [Suspect]
     Route: 048
     Dates: start: 20091003
  3. METOPROLOL TARTRATE [Concomitant]
  4. VITAMIN B12 (SUBLINGUAL) [Concomitant]
  5. ACTONEL [Concomitant]

REACTIONS (7)
  - ARTHRALGIA [None]
  - CHEST DISCOMFORT [None]
  - DRUG DOSE OMISSION [None]
  - GLOSSODYNIA [None]
  - HYPOAESTHESIA ORAL [None]
  - JOINT SWELLING [None]
  - PAIN [None]
